FAERS Safety Report 23385637 (Version 2)
Quarter: 2024Q1

REPORT INFORMATION
  Report Type: Spontaneous
  Country: CZ (occurrence: CZ)
  Receive Date: 20240110
  Receipt Date: 20240303
  Transmission Date: 20240410
  Serious: Yes (Hospitalization)
  Sender: FDA-Public Use
  Company Number: CZ-BIOGEN-2024BI01243774

PATIENT
  Age: 40 Year
  Sex: Male

DRUGS (8)
  1. DALFAMPRIDINE [Suspect]
     Active Substance: DALFAMPRIDINE
     Indication: Gait disturbance
     Dosage: FAMPIRA 10MG 1TBL. 1-0-0
     Route: 050
  2. DALFAMPRIDINE [Suspect]
     Active Substance: DALFAMPRIDINE
     Route: 050
     Dates: start: 20230331
  3. BISOPROLOL FUMARATE [Concomitant]
     Active Substance: BISOPROLOL FUMARATE
     Indication: Product used for unknown indication
     Dosage: CONCOR 0.25MG 1/2 TBL. 1-0-0
     Route: 050
  4. VENLAFAXINE [Concomitant]
     Active Substance: VENLAFAXINE HYDROCHLORIDE
     Indication: Product used for unknown indication
     Dosage: VENLAFAXINE 75MG 1TBL. 2-0-0
     Route: 050
  5. ZOLPIDEM [Concomitant]
     Active Substance: ZOLPIDEM TARTRATE
     Indication: Insomnia
     Dosage: ZOLPIDEM 10MG TABLET FOR INSOMNIA 1/2 TABLET AS REQUIRED
     Route: 050
  6. KESIMPTA [Concomitant]
     Active Substance: OFATUMUMAB
     Indication: Product used for unknown indication
     Dosage: KESIMPTA INJ. SELF-ADMINISTERED ONCE A MONTH
     Route: 050
     Dates: start: 20230509
  7. Novalgin [Concomitant]
     Indication: Headache
     Dosage: NOVALGIN 500 MG 1TBL. AS REQUESTED FOR HEADACHES
     Route: 050
  8. TRAZODONE HYDROCHLORIDE [Concomitant]
     Active Substance: TRAZODONE HYDROCHLORIDE
     Indication: Insomnia
     Dosage: 150MG 1/3 TBL. PER NIGHT F
     Route: 050

REACTIONS (1)
  - Obstructive sleep apnoea syndrome [Not Recovered/Not Resolved]

NARRATIVE: CASE EVENT DATE: 20231211
